FAERS Safety Report 20452062 (Version 1)
Quarter: 2022Q1

REPORT INFORMATION
  Report Type: Other
  Country: US (occurrence: None)
  Receive Date: 20220209
  Receipt Date: 20220209
  Transmission Date: 20220423
  Serious: Yes (Other)
  Sender: FDA-Public Use
  Company Number: US-ROCHE-3014001

PATIENT
  Age: 43 Year
  Sex: Female
  Weight: 94.432 kg

DRUGS (25)
  1. OCREVUS [Suspect]
     Active Substance: OCRELIZUMAB
     Indication: Relapsing multiple sclerosis
     Dosage: LAST DATE OF TREATMENT: 29/JUL/2019
     Route: 042
  2. ATORVASTATIN [Concomitant]
     Active Substance: ATORVASTATIN
  3. AZITHROMYCIN [Concomitant]
     Active Substance: AZITHROMYCIN
  4. BACLOFEN [Concomitant]
     Active Substance: BACLOFEN
  5. VITAMIN D3 [Concomitant]
     Active Substance: CHOLECALCIFEROL
  6. DEXTROAMPHETAMINE [Concomitant]
     Active Substance: DEXTROAMPHETAMINE
  7. DULOXETINE [Concomitant]
     Active Substance: DULOXETINE
  8. EPINEPHRINE [Concomitant]
     Active Substance: EPINEPHRINE
  9. FENOFIBRATE [Concomitant]
     Active Substance: FENOFIBRATE
  10. FLUTICASONE PROPIONATE [Concomitant]
     Active Substance: FLUTICASONE PROPIONATE
  11. LEVOCETIRIZINE [Concomitant]
     Active Substance: LEVOCETIRIZINE
  12. LISINOPRIL [Concomitant]
     Active Substance: LISINOPRIL
  13. MECLIZINE [Concomitant]
     Active Substance: MECLIZINE HYDROCHLORIDE
  14. MIRABEGRON [Concomitant]
     Active Substance: MIRABEGRON
  15. OFLOXACIN [Concomitant]
     Active Substance: OFLOXACIN
     Route: 047
  16. OLOPATADINE [Concomitant]
     Active Substance: OLOPATADINE
     Route: 047
  17. OXYBUTYNIN [Concomitant]
     Active Substance: OXYBUTYNIN
  18. PANTOPRAZOLE [Concomitant]
     Active Substance: PANTOPRAZOLE
  19. PROAIR HFA [Concomitant]
     Active Substance: ALBUTEROL SULFATE
  20. RIZATRIPTAN [Concomitant]
     Active Substance: RIZATRIPTAN
  21. ROPINIROLE [Concomitant]
     Active Substance: ROPINIROLE
  22. ROSUVASTATIN [Concomitant]
     Active Substance: ROSUVASTATIN
  23. SUCRALFATE [Concomitant]
     Active Substance: SUCRALFATE
  24. VALACYCLOVIR [Concomitant]
     Active Substance: VALACYCLOVIR HYDROCHLORIDE
  25. ZONISAMIDE [Concomitant]
     Active Substance: ZONISAMIDE

REACTIONS (3)
  - COVID-19 [Unknown]
  - Fatigue [Not Recovered/Not Resolved]
  - Cerebrovascular accident [Recovered/Resolved]

NARRATIVE: CASE EVENT DATE: 20201230
